FAERS Safety Report 23703596 (Version 2)
Quarter: 2025Q4

REPORT INFORMATION
  Report Type: Spontaneous
  Country: US (occurrence: US)
  Receive Date: 20240403
  Receipt Date: 20251010
  Transmission Date: 20260118
  Serious: No
  Sender: ELI LILLY AND COMPANY
  Company Number: US-ELI_LILLY_AND_COMPANY-US202403012065

PATIENT
  Age: 24 Year
  Sex: Male

DRUGS (1)
  1. OLUMIANT [Suspect]
     Active Substance: BARICITINIB
     Indication: Alopecia totalis
     Dosage: 2 MG, DAILY
     Route: 065
     Dates: start: 20240411

REACTIONS (2)
  - Stress [Unknown]
  - Alopecia [Unknown]
